FAERS Safety Report 23281895 (Version 1)
Quarter: 2023Q4

REPORT INFORMATION
  Report Type: Spontaneous
  Country: NO (occurrence: NO)
  Receive Date: 20231211
  Receipt Date: 20231211
  Transmission Date: 20240109
  Serious: Yes (Hospitalization)
  Sender: FDA-Public Use
  Company Number: NO-NOMAADVRE-RELISV-2023-Vn57k4

PATIENT
  Age: 56 Year
  Sex: Male

DRUGS (4)
  1. MAVENCLAD [Suspect]
     Active Substance: CLADRIBINE
     Indication: Multiple sclerosis
     Dosage: YEAR ONE MONTH ONE THERAPY AT A DOSE OF 20 MG TABLETS ON DAYS 1 TO 2 AND 10 MG ON DAYS 3 TO 5.
     Route: 048
     Dates: start: 202005
  2. MAVENCLAD [Suspect]
     Active Substance: CLADRIBINE
     Dosage: YEAR ONE MONTH TWO THERAPY AT A DOSE OF 20 MG TABLETS ON DAYS 1 TO 2 AND 10 MG ON DAYS 3 TO 5.
     Route: 048
  3. MAVENCLAD [Suspect]
     Active Substance: CLADRIBINE
     Dosage: YEAR TWO MONTH ONE THERAPY AT A DOSE OF 20 MG TABLETS ON DAYS 1 TO 2 AND 10 MG ON DAYS 3 TO 5.
     Route: 048
     Dates: start: 202106
  4. MAVENCLAD [Suspect]
     Active Substance: CLADRIBINE
     Dosage: YEAR TWO MONTH TWO THERAPY AT A DOSE OF 20 MG TABLETS ON DAYS 1 TO 2 AND 10 MG ON DAYS 3 TO 5.
     Route: 048
     Dates: start: 202107

REACTIONS (6)
  - Squamous cell carcinoma of skin [Recovering/Resolving]
  - Squamous cell carcinoma of skin [Recovering/Resolving]
  - Squamous cell carcinoma of skin [Recovering/Resolving]
  - Cancer surgery [Recovering/Resolving]
  - Cancer surgery [Recovering/Resolving]
  - Cancer surgery [Recovering/Resolving]

NARRATIVE: CASE EVENT DATE: 20221101
